FAERS Safety Report 7375899-X (Version None)
Quarter: 2011Q1

REPORT INFORMATION
  Report Type: 
  Country: None (occurrence: None)
  Receive Date: 20110325
  Receipt Date: 20110317
  Transmission Date: 20110831
  Serious: Yes (Other)
  Sender: FDA-Public Use
  Company Number: B0703397A

PATIENT

DRUGS (6)
  1. NIPOLAZIN [Concomitant]
     Indication: ASTHMA
     Dosage: 2.4ML PER DAY
     Dates: start: 20100727
  2. BIOFERMIN [Concomitant]
     Dosage: .8G PER DAY
     Dates: start: 20100727
  3. MUCODYNE [Concomitant]
     Indication: ASTHMA
     Dosage: 3.9ML PER DAY
     Dates: start: 20100727
  4. AMOXICILLIN AND CLAVULANATE POTASSIUM [Suspect]
     Indication: ASTHMA
     Dosage: .6G PER DAY
     Route: 048
     Dates: start: 20100727, end: 20100729
  5. MEPTIN [Concomitant]
     Indication: ASTHMA
     Dosage: 3.9ML PER DAY
     Dates: start: 20100727
  6. ONON [Concomitant]
     Indication: ASTHMA
     Dosage: .5G PER DAY
     Dates: start: 20100727

REACTIONS (1)
  - ERYTHEMA MULTIFORME [None]
